FAERS Safety Report 7290461-5 (Version None)
Quarter: 2011Q1

REPORT INFORMATION
  Report Type: 
  Country: None (occurrence: None)
  Receive Date: 20110208
  Receipt Date: 20110208
  Transmission Date: 20110831
  Serious: Yes (Hospitalization)
  Sender: FDA-Public Use
  Company Number: None

PATIENT
  Sex: Female

DRUGS (8)
  1. MESTINON [Concomitant]
  2. PROZAC [Concomitant]
  3. VICODIN [Concomitant]
  4. TYLENOL [Concomitant]
  5. ASA [Concomitant]
  6. LUCENTIS [Suspect]
     Indication: CHOROID MELANOMA
     Dosage: 0.5MG INTRAVITREAL INJ EVERY 2 WEEKS
     Dates: start: 20100811, end: 20101110
  7. PRILOSEC [Concomitant]
  8. PREDNISONE [Concomitant]

REACTIONS (3)
  - FALL [None]
  - FIBROMYALGIA [None]
  - MYASTHENIA GRAVIS [None]
